FAERS Safety Report 21074264 (Version 2)
Quarter: 2022Q3

REPORT INFORMATION
  Report Type: Other
  Country: US (occurrence: None)
  Receive Date: 20220713
  Receipt Date: 20220829
  Transmission Date: 20221026
  Serious: Yes (Hospitalization, Other)
  Sender: FDA-Public Use
  Company Number: US-ROCHE-3136068

PATIENT
  Age: 61 Year
  Sex: Male
  Weight: 106.69 kg

DRUGS (1)
  1. OCREVUS [Suspect]
     Active Substance: OCRELIZUMAB
     Indication: Multiple sclerosis
     Dosage: (PRESCRIBED AS 600 MG EVERY 6 MONTHS IV INFUSION)?ANTICIPATED DATE OF TREATMENT: JUL/2020, LAST DATE
     Route: 042

REACTIONS (7)
  - COVID-19 [Recovering/Resolving]
  - Facial paralysis [Recovered/Resolved]
  - Asthenia [Not Recovered/Not Resolved]
  - Mobility decreased [Not Recovered/Not Resolved]
  - Visual impairment [Not Recovered/Not Resolved]
  - Confusional state [Not Recovered/Not Resolved]
  - Lung disorder [Unknown]

NARRATIVE: CASE EVENT DATE: 20220703
